FAERS Safety Report 9785956 (Version 4)
Quarter: 2014Q2

REPORT INFORMATION
  Report Type: Spontaneous
  Country: US (occurrence: US)
  Receive Date: 20131227
  Receipt Date: 20140407
  Transmission Date: 20141212
  Serious: No
  Sender: FDA-Public Use
  Company Number: US-PFIZER INC-2013366480

PATIENT
  Age: 68 Year
  Sex: Female

DRUGS (3)
  1. XALATAN [Suspect]
     Indication: GLAUCOMA
     Dosage: 1 DROP BOTH EYES, EACH EVENING
     Route: 047
  2. LYRICA [Concomitant]
     Dosage: UNK
  3. CELEBREX [Concomitant]
     Dosage: UNK

REACTIONS (1)
  - Back pain [Unknown]
